FAERS Safety Report 8860754 (Version 1)
Quarter: 2012Q4

REPORT INFORMATION
  Report Type: 
  Country: MX (occurrence: MX)
  Receive Date: 20121026
  Receipt Date: 20121026
  Transmission Date: 20130627
  Serious: Yes (Hospitalization, Other)
  Sender: FDA-Public Use
  Company Number: MX-BRISTOL-MYERS SQUIBB COMPANY-17046368

PATIENT
  Age: 81 Year
  Sex: Female

DRUGS (2)
  1. COAPROVEL FILM-COATED TABS 300/12.5 MG [Suspect]
     Indication: HYPERTENSION
     Dosage: 1 tabs/12 hrs
     Route: 048
     Dates: end: 201207
  2. EUTIROX [Concomitant]
     Indication: THYROID DISORDER
     Dosage: 1 tab/24 hrs
100mcg
     Route: 048
     Dates: start: 1997

REACTIONS (2)
  - Intestinal obstruction [Recovered/Resolved]
  - Medication error [Unknown]
